FAERS Safety Report 5419908-3 (Version None)
Quarter: 2007Q3

REPORT INFORMATION
  Report Type: 
  Country: None (occurrence: None)
  Receive Date: 20070820
  Receipt Date: 20070808
  Transmission Date: 20080115
  Serious: Yes (Hospitalization, Disabling, Other)
  Sender: FDA-Public Use
  Company Number: US-PFIZER INC-2007005681

PATIENT
  Sex: Female
  Weight: 85.7 kg

DRUGS (2)
  1. CELEBREX [Suspect]
     Indication: ARTHRITIS
     Route: 048
     Dates: start: 20001211, end: 20020621
  2. BEXTRA [Suspect]
     Indication: ARTHRITIS
     Dates: start: 20020722

REACTIONS (1)
  - CEREBROVASCULAR ACCIDENT [None]
